FAERS Safety Report 12397937 (Version 1)
Quarter: 2016Q2

REPORT INFORMATION
  Report Type: Spontaneous
  Country: US (occurrence: None)
  Receive Date: 20160523
  Receipt Date: 20160523
  Transmission Date: 20160815
  Serious: Yes (Hospitalization)
  Sender: FDA-Public Use
  Company Number: None

PATIENT
  Age: 38 Year
  Sex: Female

DRUGS (6)
  1. ETHAMBUTOL [Concomitant]
     Active Substance: ETHAMBUTOL HYDROCHLORIDE
  2. RIPE THERAPY [Concomitant]
  3. RIFAMPIN. [Suspect]
     Active Substance: RIFAMPIN
     Indication: TUBERCULOSIS
     Route: 048
     Dates: start: 20160305, end: 20160317
  4. VITAMIN B6 [Concomitant]
     Active Substance: PYRIDOXINE HYDROCHLORIDE
  5. PYRAZINAMIDE. [Concomitant]
     Active Substance: PYRAZINAMIDE
  6. ISONIAZID. [Concomitant]
     Active Substance: ISONIAZID

REACTIONS (16)
  - Back pain [None]
  - International normalised ratio increased [None]
  - Nausea [None]
  - Haematoma [None]
  - Pyrexia [None]
  - Abdominal distension [None]
  - Asthenia [None]
  - White blood cell count decreased [None]
  - Haemoglobin decreased [None]
  - Anaphylactic reaction [None]
  - Fatigue [None]
  - Epistaxis [None]
  - Thrombocytopenia [None]
  - Immune thrombocytopenic purpura [None]
  - Mouth ulceration [None]
  - Petechiae [None]

NARRATIVE: CASE EVENT DATE: 20160305
